FAERS Safety Report 8831924 (Version 2)
Quarter: 2012Q4

REPORT INFORMATION
  Report Type: 
  Country: US (occurrence: US)
  Receive Date: 20121009
  Receipt Date: 20121108
  Transmission Date: 20130627
  Serious: No
  Sender: FDA-Public Use
  Company Number: US-ASTRAZENECA-2012SE73807

PATIENT
  Age: 89 Year
  Sex: Female
  Weight: 57.2 kg

DRUGS (12)
  1. SYMBICORT [Suspect]
     Indication: CHRONIC OBSTRUCTIVE PULMONARY DISEASE
     Dosage: 320 UG TWO TIMES A DAY
     Route: 055
     Dates: start: 201207
  2. SYMBICORT [Suspect]
     Indication: CHRONIC OBSTRUCTIVE PULMONARY DISEASE
     Dosage: 160/4.5 MGS TWO PUFFS BID
     Route: 055
     Dates: start: 20120907
  3. VIT D [Concomitant]
  4. PROAIR [Concomitant]
  5. SPIRIVA [Concomitant]
  6. FISH OIL [Concomitant]
  7. OXYGEN [Concomitant]
  8. OMEPRAZOLE [Concomitant]
  9. LEVOTHYROXINE [Concomitant]
  10. ATORVASTATIN [Concomitant]
  11. MVI [Concomitant]
  12. PRIMIDONE [Concomitant]

REACTIONS (1)
  - Dysgeusia [Not Recovered/Not Resolved]
